FAERS Safety Report 9248595 (Version 1)
Quarter: 2013Q1

REPORT INFORMATION
  Report Type: Spontaneous
  Country: US (occurrence: None)
  Receive Date: 20130305
  Receipt Date: 20130305
  Transmission Date: 20140127
  Serious: Yes (Hospitalization)
  Sender: FDA-Public Use
  Company Number: 163-21880-12053734

PATIENT
  Age: 83 Year
  Sex: Male

DRUGS (4)
  1. REVLIMID (LENALIDOMIDE) (CAPSULES) [Suspect]
     Indication: MYELODYSPLASTIC SYNDROME
     Dosage: 1 IN 1 D
     Route: 048
     Dates: start: 20110126, end: 2011
  2. ASA (ACETYLSALICYLIC ACID) [Concomitant]
  3. ALBUTEROL (SALBUTAMOL) [Concomitant]
  4. CYANOCOBALAMIN (CYANOCOBALAMIN) [Concomitant]

REACTIONS (2)
  - Pleural effusion [None]
  - Pulmonary embolism [None]
